FAERS Safety Report 6966719-3 (Version None)
Quarter: 2010Q3

REPORT INFORMATION
  Report Type: 
  Country: None (occurrence: None)
  Receive Date: 20100906
  Receipt Date: 20100830
  Transmission Date: 20110219
  Serious: Yes (Other)
  Sender: FDA-Public Use
  Company Number: ES-SHIRE-SPV1-2010-01416

PATIENT
  Age: 44 Year
  Sex: Male
  Weight: 67 kg

DRUGS (2)
  1. VELAGLUCERASE ALFA [Suspect]
     Indication: GAUCHER'S DISEASE
     Dosage: 2800 IU, 1X/2WKS
     Route: 041
     Dates: start: 20100712, end: 20100727
  2. IMIGLUCERASE [Concomitant]
     Indication: GAUCHER'S DISEASE
     Dosage: 45 IU, 1X/2WKS
     Dates: end: 20100621

REACTIONS (8)
  - ACCOMMODATION DISORDER [None]
  - DEPRESSED LEVEL OF CONSCIOUSNESS [None]
  - EYELID OEDEMA [None]
  - PARAESTHESIA [None]
  - SENSORY LOSS [None]
  - TINNITUS [None]
  - VERTIGO [None]
  - VISION BLURRED [None]
